FAERS Safety Report 20442473 (Version 6)
Quarter: 2023Q1

REPORT INFORMATION
  Report Type: Report from Study
  Country: IL (occurrence: IL)
  Receive Date: 20220208
  Receipt Date: 20230223
  Transmission Date: 20230417
  Serious: Yes (Other)
  Sender: FDA-Public Use
  Company Number: IL-NOVARTISPH-NVSC2020IL346105

PATIENT
  Age: 64 Year
  Sex: Male

DRUGS (2)
  1. TAFINLAR [Suspect]
     Active Substance: DABRAFENIB MESYLATE
     Indication: Non-small cell lung cancer
     Dosage: 150 MG, BID
     Route: 048
     Dates: start: 20201128, end: 20230215
  2. MEKINIST [Suspect]
     Active Substance: TRAMETINIB DIMETHYL SULFOXIDE
     Indication: Non-small cell lung cancer
     Dosage: 2 MG, QD
     Route: 048
     Dates: start: 20201128, end: 20230215

REACTIONS (14)
  - Loss of consciousness [Recovered/Resolved]
  - Blood pressure decreased [Unknown]
  - Tinnitus [Not Recovered/Not Resolved]
  - Coagulopathy [Unknown]
  - Gastritis [Unknown]
  - Hypoaesthesia [Not Recovered/Not Resolved]
  - Foreign body in eye [Recovering/Resolving]
  - Migraine [Unknown]
  - Haemoglobin decreased [Not Recovered/Not Resolved]
  - Headache [Not Recovered/Not Resolved]
  - Abdominal pain [Not Recovered/Not Resolved]
  - Pain in extremity [Unknown]
  - Cough [Not Recovered/Not Resolved]
  - Incorrect dose administered [Recovered/Resolved]

NARRATIVE: CASE EVENT DATE: 20210121
